FAERS Safety Report 6524257-6 (Version None)
Quarter: 2009Q4

REPORT INFORMATION
  Report Type: 
  Country: None (occurrence: None)
  Receive Date: 20091230
  Receipt Date: 20091230
  Transmission Date: 20100525
  Serious: Yes (Other)
  Sender: FDA-Public Use
  Company Number: None

PATIENT
  Age: 26 Year
  Sex: Female
  Weight: 81.6475 kg

DRUGS (4)
  1. SAVELLA [Suspect]
     Indication: FIBROMYALGIA
     Dosage: 50MG 1X DAILY PO
     Route: 048
     Dates: start: 20091118, end: 20091222
  2. METFORMIN [Concomitant]
  3. LYRICA [Concomitant]
  4. LEVOXYL [Concomitant]

REACTIONS (3)
  - DYSTONIA [None]
  - MUSCLE SPASMS [None]
  - MUSCLE TWITCHING [None]
